FAERS Safety Report 5960882-9 (Version None)
Quarter: 2008Q4

REPORT INFORMATION
  Report Type: 
  Country: None (occurrence: None)
  Receive Date: 20081118
  Receipt Date: 20081103
  Transmission Date: 20090506
  Serious: Yes (Death)
  Sender: FDA-Public Use
  Company Number: 2008S1019745

PATIENT
  Sex: Female

DRUGS (1)
  1. GLYBURIDE [Suspect]
     Indication: GESTATIONAL DIABETES
     Dosage: 12.5 MG; INTRA-ARTICULAR
     Route: 014

REACTIONS (2)
  - MATERNAL DRUGS AFFECTING FOETUS [None]
  - STILLBIRTH [None]
